FAERS Safety Report 22967278 (Version 5)
Quarter: 2024Q1

REPORT INFORMATION
  Report Type: Report from Study
  Country: CA (occurrence: CA)
  Receive Date: 20230921
  Receipt Date: 20240207
  Transmission Date: 20240409
  Serious: Yes (Death, Hospitalization, Other)
  Sender: FDA-Public Use
  Company Number: CA-AstraZeneca-2023A210081

PATIENT
  Sex: Female

DRUGS (1)
  1. ENHERTU [Suspect]
     Active Substance: FAM-TRASTUZUMAB DERUXTECAN-NXKI
     Indication: HER2 negative breast cancer
     Dosage: 450 MG, ONCE EVERY 3 WK
     Route: 042
     Dates: start: 20230228

REACTIONS (3)
  - Death [Fatal]
  - Pain [Unknown]
  - Intentional product misuse [Not Recovered/Not Resolved]

NARRATIVE: CASE EVENT DATE: 20230101
